FAERS Safety Report 5673034-7 (Version None)
Quarter: 2008Q1

REPORT INFORMATION
  Report Type: 
  Country: None (occurrence: None)
  Receive Date: 20080319
  Receipt Date: 20080123
  Transmission Date: 20080703
  Serious: No
  Sender: FDA-Public Use
  Company Number: US-ASTRAZENECA-2008UW01703

PATIENT
  Age: 72 Year
  Sex: Female
  Weight: 81.6 kg

DRUGS (9)
  1. SYMBICORT [Suspect]
     Indication: ASTHMA
     Dosage: 80/4.5 UG - 2 PUFFS  BID
     Route: 055
  2. ZYRTEC [Concomitant]
  3. MUCINEX [Concomitant]
  4. ZOCOR [Concomitant]
  5. CELEBREX [Concomitant]
  6. SYNTHROID [Concomitant]
  7. CHONDROITIN [Concomitant]
  8. GLUCOSAMINE [Concomitant]
  9. CALTRATE [Concomitant]

REACTIONS (4)
  - DIZZINESS [None]
  - NASAL CONGESTION [None]
  - POSTNASAL DRIP [None]
  - RHINORRHOEA [None]
